FAERS Safety Report 13949127 (Version 1)
Quarter: 2017Q3

REPORT INFORMATION
  Report Type: Spontaneous
  Country: IN (occurrence: IN)
  Receive Date: 20170908
  Receipt Date: 20170908
  Transmission Date: 20171128
  Serious: Yes (Other)
  Sender: FDA-Public Use
  Company Number: IN-GLAXOSMITHKLINE-IN2017GSK137039

PATIENT
  Age: 5 Year
  Sex: Female

DRUGS (6)
  1. ACYCLOVIR. [Suspect]
     Active Substance: ACYCLOVIR
     Indication: PSEUDOMONAS INFECTION
  2. PHENOBARBITONE [Suspect]
     Active Substance: PHENOBARBITAL
  3. PIPERACILLIN AND TAZOBACTAM [Suspect]
     Active Substance: PIPERACILLIN SODIUM\TAZOBACTAM SODIUM
     Indication: PSEUDOMONAS INFECTION
     Route: 042
  4. MEROPENEM. [Suspect]
     Active Substance: MEROPENEM
     Indication: PSEUDOMONAS INFECTION
  5. PHENYTOIN. [Suspect]
     Active Substance: PHENYTOIN
  6. VANCOMYCIN [Suspect]
     Active Substance: VANCOMYCIN
     Indication: PSEUDOMONAS INFECTION

REACTIONS (2)
  - Pathogen resistance [Unknown]
  - Drug resistance [Unknown]
